FAERS Safety Report 16723872 (Version 1)
Quarter: 2019Q3

REPORT INFORMATION
  Report Type: Spontaneous
  Country: US (occurrence: US)
  Receive Date: 20190703
  Receipt Date: 20190703
  Transmission Date: 20191005
  Serious: No
  Sender: FDA-Public Use
  Company Number: None

PATIENT
  Sex: Male

DRUGS (1)
  1. CV SCIENCE CBD OIL [Suspect]
     Active Substance: CANNABIDIOL\HERBALS

REACTIONS (2)
  - Epistaxis [None]
  - Product formulation issue [None]
